FAERS Safety Report 25749798 (Version 2)
Quarter: 2025Q3

REPORT INFORMATION
  Report Type: Spontaneous
  Country: IN (occurrence: IN)
  Receive Date: 20250902
  Receipt Date: 20250929
  Transmission Date: 20251021
  Serious: Yes (Other)
  Sender: BIOLOGICAL E. LIMITED
  Company Number: IN-BELUSA-2025BELLIT0043

PATIENT

DRUGS (1)
  1. HEPARIN SODIUM [Suspect]
     Active Substance: HEPARIN SODIUM
     Indication: Antiphospholipid syndrome

REACTIONS (1)
  - Bullous haemorrhagic dermatosis [Recovered/Resolved]
